FAERS Safety Report 7957068-5 (Version None)
Quarter: 2011Q4

REPORT INFORMATION
  Report Type: 
  Country: None (occurrence: None)
  Receive Date: 20111205
  Receipt Date: 20111129
  Transmission Date: 20120403
  Serious: No
  Sender: FDA-Public Use
  Company Number: US-MUTUAL PHARMACEUTICAL COMPANY, INC.-QLQN20110013

PATIENT
  Sex: Male

DRUGS (1)
  1. QUALAQUIN [Suspect]
     Indication: MUSCLE SPASMS
     Route: 065

REACTIONS (3)
  - HAEMATOCHEZIA [None]
  - OFF LABEL USE [None]
  - PRURITUS [None]
